FAERS Safety Report 8697837 (Version 3)
Quarter: 2012Q4

REPORT INFORMATION
  Report Type: 
  Country: US (occurrence: US)
  Receive Date: 20120801
  Receipt Date: 20121002
  Transmission Date: 20130627
  Serious: No
  Sender: FDA-Public Use
  Company Number: US-ASTRAZENECA-2012SE51560

PATIENT
  Age: 70 Year
  Sex: Female

DRUGS (2)
  1. ARIMIDEX [Suspect]
     Route: 048
  2. ARIMIDEX [Suspect]
     Dosage: GENERIC
     Route: 048

REACTIONS (7)
  - Pain in jaw [Recovered/Resolved]
  - Tooth abscess [Unknown]
  - Pain in extremity [Unknown]
  - Musculoskeletal stiffness [Unknown]
  - Drug intolerance [Unknown]
  - Swelling [Recovering/Resolving]
  - Arthritis [Unknown]
